FAERS Safety Report 6392142-9 (Version None)
Quarter: 2009Q4

REPORT INFORMATION
  Report Type: 
  Country: None (occurrence: None)
  Receive Date: 20091007
  Receipt Date: 20090928
  Transmission Date: 20100525
  Serious: Yes (Hospitalization)
  Sender: FDA-Public Use
  Company Number: JP-ABBOTT-09P-087-0600619-00

PATIENT
  Age: 72 Year
  Sex: Male

DRUGS (18)
  1. LEUPLIN SR FOR INJECTION 11.25 MG [Suspect]
     Indication: PROSTATE CANCER STAGE IV
     Dates: start: 20080723, end: 20090423
  2. LEUPLIN SR FOR INJECTION 11.25 MG [Suspect]
     Dates: start: 20050126, end: 20080625
  3. FLUTAMIDE [Concomitant]
     Indication: PROSTATE CANCER STAGE IV
     Route: 048
     Dates: end: 20080819
  4. FLUTAMIDE [Concomitant]
     Dates: start: 20080820, end: 20090227
  5. FLUTAMIDE [Concomitant]
     Route: 048
     Dates: start: 20090228
  6. LOSARTAN POTASSIUM AND HYDROCHLOROTHIAZIDE [Concomitant]
     Indication: HYPERTENSION
     Route: 048
  7. ZYLORIC [Concomitant]
     Indication: HYPERURICAEMIA
     Route: 048
  8. WARFARIN [Concomitant]
     Indication: EMBOLIC STROKE
     Route: 048
  9. DIART [Concomitant]
     Indication: HYPERTENSION
     Route: 048
  10. AMARYL [Concomitant]
     Indication: DIABETES MELLITUS
     Route: 048
  11. ADALAT CC [Concomitant]
     Indication: HYPERTENSION
     Route: 048
  12. DIGITOXIN INJ [Concomitant]
     Indication: ATRIAL FIBRILLATION
     Route: 048
  13. PROSEXOL [Concomitant]
     Indication: PROSTATE CANCER STAGE IV
     Route: 048
     Dates: start: 20090422, end: 20090501
  14. PROSEXOL [Concomitant]
     Route: 048
     Dates: start: 20090603
  15. MYSLEE [Concomitant]
     Indication: INSOMNIA
     Route: 048
     Dates: start: 20090502
  16. GASTER D [Concomitant]
     Indication: GASTRITIS
     Route: 048
     Dates: start: 20090505
  17. KETOPROFEN [Concomitant]
     Indication: DRUG USE FOR UNKNOWN INDICATION
     Route: 062
     Dates: start: 20090511
  18. BIOFERMIN [Concomitant]
     Indication: DRUG USE FOR UNKNOWN INDICATION
     Route: 048
     Dates: start: 20090505, end: 20090507

REACTIONS (1)
  - EMBOLIC STROKE [None]
